FAERS Safety Report 6151566-5 (Version None)
Quarter: 2009Q2

REPORT INFORMATION
  Report Type: 
  Country: None (occurrence: None)
  Receive Date: 20090410
  Receipt Date: 20090407
  Transmission Date: 20091009
  Serious: Yes (Life-Threatening)
  Sender: FDA-Public Use
  Company Number: FR-ASTRAZENECA-2009CG00645

PATIENT
  Age: 19664 Day
  Sex: Male

DRUGS (7)
  1. DIPRIVAN [Suspect]
     Indication: INDUCTION OF ANAESTHESIA
     Route: 042
     Dates: start: 20090311, end: 20090311
  2. SUFENTA PRESERVATIVE FREE [Suspect]
     Indication: INDUCTION OF ANAESTHESIA
     Route: 042
     Dates: start: 20090311, end: 20090311
  3. TRACRIUM [Suspect]
     Indication: INDUCTION OF ANAESTHESIA
     Route: 042
     Dates: start: 20090311, end: 20090311
  4. MIMPARA [Concomitant]
  5. PERINDOPRIL ERBUMINE [Concomitant]
     Dates: end: 20090309
  6. KREDEX [Concomitant]
  7. LASIX [Concomitant]

REACTIONS (1)
  - SHOCK [None]
